FAERS Safety Report 7347552-X (Version None)
Quarter: 2011Q1

REPORT INFORMATION
  Report Type: 
  Country: None (occurrence: None)
  Receive Date: 20110311
  Receipt Date: 20110301
  Transmission Date: 20110831
  Serious: Yes (Other)
  Sender: FDA-Public Use
  Company Number: JP-AMGEN-JPNCT2011013564

PATIENT
  Age: 52 Year
  Sex: Male
  Weight: 53 kg

DRUGS (14)
  1. DECADRON [Concomitant]
     Dosage: UNK
     Route: 042
  2. NADIFLOXACIN [Concomitant]
     Dosage: UNK
     Route: 062
  3. FLUOROURACIL [Concomitant]
     Route: 041
     Dates: start: 20101006, end: 20101201
  4. GOSHAJINKIGAN [Concomitant]
     Dosage: UNK
     Route: 048
  5. OXALIPLATIN [Concomitant]
     Indication: COLORECTAL CANCER
     Route: 041
     Dates: start: 20101006, end: 20101201
  6. MINOMYCIN [Concomitant]
     Dosage: UNK
     Route: 048
  7. AMOBAN [Concomitant]
     Dosage: UNK
     Route: 048
  8. VALGANCICLOVIR [Concomitant]
     Dosage: UNK
     Route: 048
  9. CORTICOSTEROIDS [Concomitant]
     Indication: PROPHYLAXIS
     Dosage: UNK
     Route: 065
  10. FLUOROURACIL [Concomitant]
     Indication: COLORECTAL CANCER
     Route: 040
     Dates: start: 20101006, end: 20101201
  11. CALCIUM LEVOFOLINATE [Concomitant]
     Indication: COLORECTAL CANCER
     Route: 041
     Dates: start: 20101006, end: 20101201
  12. KYTRIL [Concomitant]
     Dosage: UNK
     Route: 042
  13. HIRUDOID [Concomitant]
     Dosage: UNK
     Route: 062
  14. PANITUMUMAB [Suspect]
     Indication: COLORECTAL CANCER METASTATIC
     Dosage: 6 MG/KG, Q2WK
     Route: 041
     Dates: start: 20101006, end: 20101201

REACTIONS (7)
  - HAEMATURIA [None]
  - STOMATITIS [None]
  - HEPATIC FUNCTION ABNORMAL [None]
  - BLOOD MAGNESIUM DECREASED [None]
  - THROMBOCYTOPENIA [None]
  - DRY SKIN [None]
  - BONE MARROW FAILURE [None]
